FAERS Safety Report 17993031 (Version 1)
Quarter: 2020Q3

REPORT INFORMATION
  Report Type: Spontaneous
  Country: CA (occurrence: CA)
  Receive Date: 20200708
  Receipt Date: 20200708
  Transmission Date: 20201103
  Serious: Yes (Other)
  Sender: FDA-Public Use
  Company Number: CA-ACCORD-188973

PATIENT
  Age: 58 Year
  Sex: Female

DRUGS (5)
  1. VEDOLIZUMAB [Concomitant]
     Active Substance: VEDOLIZUMAB
  2. FOLINIC ACID [Concomitant]
     Active Substance: LEUCOVORIN
  3. ASA [Concomitant]
     Active Substance: ASPIRIN
     Dosage: NOT SPECIFIED
  4. ATORVASTATIN [Concomitant]
     Active Substance: ATORVASTATIN
  5. METHOTREXATE. [Suspect]
     Active Substance: METHOTREXATE
     Indication: PRODUCT USED FOR UNKNOWN INDICATION
     Route: 065

REACTIONS (9)
  - Haemoglobin decreased [Unknown]
  - Cholelithiasis [Unknown]
  - Fatigue [Unknown]
  - Alanine aminotransferase increased [Unknown]
  - Arthralgia [Unknown]
  - Incisional hernia [Unknown]
  - Abdominal pain [Unknown]
  - Blood bilirubin increased [Unknown]
  - Disturbance in attention [Unknown]
